FAERS Safety Report 4422991-5 (Version None)
Quarter: 2004Q3

REPORT INFORMATION
  Report Type: 
  Country: None (occurrence: None)
  Receive Date: 20040805
  Receipt Date: 20040727
  Transmission Date: 20050211
  Serious: Yes (Congenital Anomaly)
  Sender: FDA-Public Use
  Company Number: US013508

PATIENT
  Age: 0 Day
  Sex: Male
  Weight: 32.04 kg

DRUGS (2)
  1. PROVIGIL [Suspect]
     Indication: SEDATION
     Dosage: 200 MG QD ORAL
     Route: 048
     Dates: start: 20031101, end: 20041112
  2. OXYCONTIN [Suspect]
     Indication: PAIN

REACTIONS (3)
  - CHORDEE [None]
  - DRUG EXPOSURE DURING PREGNANCY [None]
  - HYPOSPADIAS [None]
